FAERS Safety Report 23408505 (Version 1)
Quarter: 2024Q1

REPORT INFORMATION
  Report Type: Spontaneous
  Country: FR (occurrence: FR)
  Receive Date: 20240117
  Receipt Date: 20240117
  Transmission Date: 20240410
  Serious: Yes (Hospitalization, Other)
  Sender: FDA-Public Use
  Company Number: FR-EPICPHARMA-FR-2024EPCLIT00020

PATIENT
  Age: 21 Day
  Sex: Female
  Weight: 0.8 kg

DRUGS (2)
  1. GENTAMICIN SULFATE [Suspect]
     Active Substance: GENTAMICIN SULFATE
     Indication: Neonatal infection
     Route: 042
  2. AMPICILLIN [Suspect]
     Active Substance: AMPICILLIN
     Indication: Neonatal infection
     Route: 042

REACTIONS (2)
  - Necrotising colitis [Recovered/Resolved]
  - Product use in unapproved indication [Unknown]
